FAERS Safety Report 20916961 (Version 1)
Quarter: 2022Q2

REPORT INFORMATION
  Report Type: Spontaneous
  Country: ES (occurrence: ES)
  Receive Date: 20220606
  Receipt Date: 20220606
  Transmission Date: 20220721
  Serious: Yes (Other)
  Sender: FDA-Public Use
  Company Number: None

PATIENT
  Age: 21 Year
  Sex: Female

DRUGS (1)
  1. NUVARING [Suspect]
     Active Substance: ETHINYL ESTRADIOL\ETONOGESTREL
     Indication: Contraception
     Dosage: UNK, 0.120MG/0.015MG EVERY 24 HOURS, VAGINAL DELIVERY SYSTEM
     Route: 067
     Dates: start: 20220504

REACTIONS (2)
  - Localised oedema [Recovering/Resolving]
  - Clitoral engorgement [Recovering/Resolving]

NARRATIVE: CASE EVENT DATE: 20220509
